FAERS Safety Report 24618086 (Version 1)
Quarter: 2024Q4

REPORT INFORMATION
  Report Type: Spontaneous
  Country: US (occurrence: US)
  Receive Date: 20241114
  Receipt Date: 20241114
  Transmission Date: 20250115
  Serious: No
  Sender: AMGEN
  Company Number: US-AMGEN-USASP2024222424

PATIENT
  Age: 77 Year
  Sex: Female
  Weight: 20.1 kg

DRUGS (2)
  1. PREDNISONE [Suspect]
     Active Substance: PREDNISONE
     Indication: Vocal cord paralysis
     Dosage: UNK
     Route: 048
  2. NIMODIPINE [Concomitant]
     Active Substance: NIMODIPINE
     Indication: Vocal cord paralysis
     Dosage: UNK

REACTIONS (4)
  - Obstructive sleep apnoea syndrome [Recovering/Resolving]
  - Breathing-related sleep disorder [Recovering/Resolving]
  - Drug effective for unapproved indication [Unknown]
  - Off label use [Unknown]
